FAERS Safety Report 6596194-2 (Version None)
Quarter: 2010Q1

REPORT INFORMATION
  Report Type: 
  Country: None (occurrence: None)
  Receive Date: 20100223
  Receipt Date: 20100217
  Transmission Date: 20100710
  Serious: Yes (Other)
  Sender: FDA-Public Use
  Company Number: ZA-GENZYME-POMP-1000847

PATIENT
  Sex: Male
  Weight: 27.5 kg

DRUGS (1)
  1. MYOZYME [Suspect]
     Indication: GLYCOGEN STORAGE DISEASE TYPE II
     Dosage: UNK
     Route: 042
     Dates: start: 20010713

REACTIONS (4)
  - AREFLEXIA [None]
  - ASTHENIA [None]
  - MUSCLE ENZYME INCREASED [None]
  - NO THERAPEUTIC RESPONSE [None]
